FAERS Safety Report 5679585-3 (Version None)
Quarter: 2008Q1

REPORT INFORMATION
  Report Type: 
  Country: None (occurrence: None)
  Receive Date: 20080321
  Receipt Date: 20080310
  Transmission Date: 20080703
  Serious: Yes (Life-Threatening, Other)
  Sender: FDA-Public Use
  Company Number: 2008JP000218

PATIENT
  Age: 74 Year
  Sex: Male

DRUGS (6)
  1. VESICARE [Suspect]
     Indication: HYPERTONIC BLADDER
     Dosage: 5 MG, UID/QD, ORAL
     Route: 048
     Dates: start: 20071214, end: 20080107
  2. ANTI-DIABETICS() PER ORAL NOS [Suspect]
     Dosage: ORAL
     Route: 048
     Dates: end: 20080108
  3. ESTRACYT (ESTRAMUSTINE PHOSPHATE SODIUM) PER ORAL NOS [Concomitant]
  4. GASTER D ORODISPERSIBLE CR TABLET [Concomitant]
  5. HARNAL (TAMSULOSIN) ORODISPERSIBLE CR TABLET, UNKNOWN [Concomitant]
  6. ZOLADEX LA (GOSERELIN ACETATE) INJECTION [Concomitant]

REACTIONS (5)
  - HYDRONEPHROSIS [None]
  - HYPOGLYCAEMIA [None]
  - HYPOTONIC URINARY BLADDER [None]
  - RENAL FAILURE ACUTE [None]
  - URINARY RETENTION [None]
